FAERS Safety Report 23279021 (Version 1)
Quarter: 2023Q4

REPORT INFORMATION
  Report Type: Spontaneous
  Country: CN (occurrence: CN)
  Receive Date: 20231209
  Receipt Date: 20231209
  Transmission Date: 20240110
  Serious: Yes (Other)
  Sender: FDA-Public Use
  Company Number: CN-SUN PHARMACEUTICAL INDUSTRIES LTD-2023R1-422669

PATIENT
  Age: 68 Year
  Sex: Female

DRUGS (1)
  1. ASPIRIN [Suspect]
     Active Substance: ASPIRIN
     Indication: Neuromyelitis optica spectrum disorder
     Dosage: UNK
     Route: 065

REACTIONS (1)
  - Condition aggravated [Unknown]
